FAERS Safety Report 5045675-1 (Version None)
Quarter: 2006Q3

REPORT INFORMATION
  Report Type: 
  Country: None (occurrence: None)
  Receive Date: 20060707
  Receipt Date: 20060624
  Transmission Date: 20061208
  Serious: Yes (Other)
  Sender: FDA-Public Use
  Company Number: US-JNJFOC-20060700500

PATIENT
  Sex: Male

DRUGS (15)
  1. FENTANYL TRANSDERMAL SYSTEM [Suspect]
     Route: 062
  2. FENTANYL TRANSDERMAL SYSTEM [Suspect]
     Indication: PAIN
     Route: 062
  3. CYMBALTA [Suspect]
     Indication: DRUG USE FOR UNKNOWN INDICATION
  4. OXYCODONE HCL [Concomitant]
  5. ROXICET [Concomitant]
  6. PREDNISONE TAB [Concomitant]
  7. COLACE [Concomitant]
  8. CLONAZEPAM [Concomitant]
  9. CLONIDINE [Concomitant]
     Indication: MUSCLE SPASMS
  10. LACTULOSE [Concomitant]
  11. LIDODERM [Concomitant]
  12. LYRICA [Concomitant]
  13. PROSCAR [Concomitant]
  14. TIZANIDINE HCL [Concomitant]
  15. TRIAZOLAM [Concomitant]

REACTIONS (2)
  - DRUG DEPENDENCE [None]
  - GLAUCOMA [None]
